FAERS Safety Report 4981393-3 (Version None)
Quarter: 2006Q2

REPORT INFORMATION
  Report Type: 
  Country: None (occurrence: None)
  Receive Date: 20060424
  Receipt Date: 20050112
  Transmission Date: 20061013
  Serious: Yes (Death, Disabling, Other)
  Sender: FDA-Public Use
  Company Number: US-MERCK-0501USA01867

PATIENT
  Age: 61 Year
  Sex: Male
  Weight: 114 kg

DRUGS (4)
  1. VIOXX [Suspect]
     Indication: ARTHRITIS
     Route: 048
     Dates: start: 20000101, end: 20031109
  2. LIPITOR [Concomitant]
     Route: 065
  3. PRINIVIL [Concomitant]
     Route: 065
  4. ATENOLOL [Concomitant]
     Route: 065

REACTIONS (7)
  - ARTERIOSCLEROSIS CORONARY ARTERY [None]
  - CARDIAC ARREST [None]
  - CATARACT [None]
  - DIZZINESS [None]
  - EAR DISCOMFORT [None]
  - MYOCARDIAL INFARCTION [None]
  - RETINAL TEAR [None]
